FAERS Safety Report 8905919 (Version 1)
Quarter: 2012Q4

REPORT INFORMATION
  Report Type: 
  Country: US (occurrence: US)
  Receive Date: 20121109
  Receipt Date: 20121109
  Transmission Date: 20130627
  Serious: Yes (Hospitalization)
  Sender: FDA-Public Use
  Company Number: US-GLAXOSMITHKLINE-A0775461A

PATIENT
  Age: 55 Year
  Sex: Male

DRUGS (1)
  1. AVANDIA [Suspect]
     Indication: DIABETES MELLITUS
     Route: 048
     Dates: end: 200107

REACTIONS (4)
  - Cerebrovascular accident [Unknown]
  - Catheterisation cardiac [Unknown]
  - Coronary artery bypass [Unknown]
  - Aortic valve replacement [Unknown]
